FAERS Safety Report 11687043 (Version 1)
Quarter: 2015Q4

REPORT INFORMATION
  Report Type: Spontaneous
  Country: IT (occurrence: IT)
  Receive Date: 20151030
  Receipt Date: 20151030
  Transmission Date: 20160304
  Serious: Yes (Life-Threatening, Other)
  Sender: FDA-Public Use
  Company Number: IT-TEVA-602749ISR

PATIENT
  Age: 72 Year
  Sex: Male

DRUGS (1)
  1. OLANZAPINA TEVA [Suspect]
     Active Substance: OLANZAPINE
     Dosage: 10 MILLIGRAM DAILY; ORODISPERSIBLE TABLET
     Route: 048
     Dates: start: 20150901, end: 20151001

REACTIONS (5)
  - Product solubility abnormal [Recovered/Resolved]
  - Dysphagia [Recovered/Resolved]
  - Reaction to drug excipients [Unknown]
  - Dyspnoea [Recovered/Resolved]
  - Drug effect decreased [Recovered/Resolved]

NARRATIVE: CASE EVENT DATE: 20150901
